FAERS Safety Report 18683906 (Version 15)
Quarter: 2022Q3

REPORT INFORMATION
  Report Type: Report from Study
  Country: BR (occurrence: BR)
  Receive Date: 20201230
  Receipt Date: 20220705
  Transmission Date: 20221026
  Serious: Yes (Hospitalization, Disabling, Other)
  Sender: FDA-Public Use
  Company Number: BR-TAKEDA-BR201912693

PATIENT
  Age: 10 Year
  Sex: Male
  Weight: 35 kg

DRUGS (18)
  1. IDURSULFASE [Suspect]
     Active Substance: IDURSULFASE
     Indication: Mucopolysaccharidosis II
     Dosage: UNK, 1/WEEK
     Route: 042
  2. IDURSULFASE [Suspect]
     Active Substance: IDURSULFASE
     Dosage: 4 DOSAGE FORM, 1/WEEK
     Route: 042
  3. IDURSULFASE [Suspect]
     Active Substance: IDURSULFASE
     Dosage: 3 DOSAGE FORM, Q2WEEKS
     Route: 042
     Dates: start: 2012
  4. IDURSULFASE [Suspect]
     Active Substance: IDURSULFASE
     Dosage: 4 DOSAGE FORM, Q2WEEKS
     Route: 042
     Dates: start: 2012
  5. IDURSULFASE [Suspect]
     Active Substance: IDURSULFASE
     Dosage: 4 DOSAGE FORM, 1/WEEK
     Route: 042
     Dates: start: 20130101
  6. IDURSULFASE [Suspect]
     Active Substance: IDURSULFASE
     Dosage: 3 DOSAGE FORM
     Route: 065
     Dates: start: 20220120
  7. IDURSULFASE [Suspect]
     Active Substance: IDURSULFASE
     Dosage: 4 DOSAGE FORM, 1/WEEK
     Route: 042
  8. IDURSULFASE [Suspect]
     Active Substance: IDURSULFASE
     Dosage: 3 DOSAGE FORM
     Route: 065
  9. KEPPRA [Concomitant]
     Active Substance: LEVETIRACETAM
     Indication: Seizure
     Dosage: 3 MILLIGRAM, BID
     Route: 065
  10. RISPERIDONE [Concomitant]
     Active Substance: RISPERIDONE
     Indication: Agitation
     Dosage: 1 MILLILITER, BID
     Route: 065
     Dates: start: 2013
  11. MELATONIN [Concomitant]
     Active Substance: MELATONIN
     Indication: Insomnia
     Dosage: 5 MILLILITER, QD
     Route: 065
  12. HYDROXYZINE HYDROCHLORIDE [Concomitant]
     Active Substance: HYDROXYZINE HYDROCHLORIDE
     Indication: Premedication
     Dosage: 10 MILLILITER
     Route: 065
  13. ALBUTEROL [Concomitant]
     Active Substance: ALBUTEROL
     Dosage: UNK UNK, Q4HR
     Route: 065
  14. LEVOFLOXACIN [Concomitant]
     Active Substance: LEVOFLOXACIN
     Dosage: 1 DOSAGE FORM, Q12H
     Route: 065
  15. CEFTRIAXONE [Concomitant]
     Active Substance: CEFTRIAXONE
     Dosage: UNK
     Route: 065
  16. IPRATROPIUM [Concomitant]
     Active Substance: IPRATROPIUM
     Dosage: UNK
     Route: 065
  17. BECLOMETHASONE [Concomitant]
     Active Substance: BECLOMETHASONE
     Dosage: UNK
     Route: 065
  18. OTOCIRIAX [Concomitant]
     Dosage: UNK UNK, Q12H
     Route: 065

REACTIONS (26)
  - COVID-19 [Unknown]
  - Unevaluable event [Unknown]
  - Seizure [Recovered/Resolved]
  - Adverse event [Unknown]
  - Mucopolysaccharidosis II [Unknown]
  - Condition aggravated [Recovering/Resolving]
  - Dysphagia [Unknown]
  - Gait inability [Recovering/Resolving]
  - Bacterial tracheitis [Unknown]
  - Urticaria [Recovered/Resolved]
  - Infusion related reaction [Recovered/Resolved]
  - Muscular weakness [Recovering/Resolving]
  - Agitation [Recovered/Resolved]
  - Dysarthria [Unknown]
  - Oxygen saturation decreased [Recovering/Resolving]
  - Productive cough [Unknown]
  - Tremor [Unknown]
  - Pyrexia [Recovering/Resolving]
  - Dyspnoea [Recovering/Resolving]
  - Communication disorder [Unknown]
  - Inappropriate schedule of product administration [Unknown]
  - Incorrect dose administered [Unknown]
  - Incorrect product administration duration [Unknown]
  - Off label use [Unknown]
  - Product availability issue [Unknown]
  - Drug ineffective [Unknown]

NARRATIVE: CASE EVENT DATE: 20200201
